FAERS Safety Report 4514027-2 (Version None)
Quarter: 2004Q4

REPORT INFORMATION
  Report Type: 
  Country: None (occurrence: None)
  Receive Date: 20041124
  Receipt Date: 20041116
  Transmission Date: 20050328
  Serious: Yes (Other)
  Sender: FDA-Public Use
  Company Number: HQWYE129827OCT04

PATIENT
  Sex: Male

DRUGS (1)
  1. PROTONIX [Suspect]

REACTIONS (3)
  - IMPAIRED HEALING [None]
  - LUNG INFECTION [None]
  - PNEUMONIA [None]
